FAERS Safety Report 21438588 (Version 1)
Quarter: 2022Q4

REPORT INFORMATION
  Report Type: Spontaneous
  Country: US (occurrence: None)
  Receive Date: 20221007
  Receipt Date: 20221007
  Transmission Date: 20230113
  Serious: Yes (Death)
  Sender: FDA-Public Use
  Company Number: None

PATIENT
  Age: 67 Year
  Sex: Male

DRUGS (6)
  1. MEKTOVI [Suspect]
     Active Substance: BINIMETINIB
     Indication: Sarcoidosis
     Dosage: FREQUENCY : TWICE A DAY;?
     Route: 048
     Dates: start: 202107
  2. MEKTOVI [Suspect]
     Active Substance: BINIMETINIB
     Indication: Metastatic neoplasm
  3. MEKTOVI [Suspect]
     Active Substance: BINIMETINIB
     Indication: Metastases to central nervous system
  4. BRAFTOVI [Suspect]
     Active Substance: ENCORAFENIB
     Indication: Sarcoidosis
     Dosage: FREQUENCY : DAILY
     Route: 048
     Dates: start: 202107
  5. BRAFTOVI [Suspect]
     Active Substance: ENCORAFENIB
     Indication: Metastatic neoplasm
  6. BRAFTOVI [Suspect]
     Active Substance: ENCORAFENIB
     Indication: Metastases to central nervous system

REACTIONS (1)
  - Neoplasm malignant [None]

NARRATIVE: CASE EVENT DATE: 20220915
